FAERS Safety Report 7488812-1 (Version None)
Quarter: 2011Q2

REPORT INFORMATION
  Report Type: 
  Country: None (occurrence: None)
  Receive Date: 20110511
  Receipt Date: 20110502
  Transmission Date: 20111010
  Serious: Yes (Hospitalization)
  Sender: FDA-Public Use
  Company Number: 1000019527

PATIENT
  Age: 53 Year
  Sex: Female
  Weight: 48.99 kg

DRUGS (19)
  1. NAMENDA [Suspect]
     Indication: MIGRAINE
     Dosage: 5 MG (5 MG, 1 IN 1 D),ORAL,   30 MG (.15 MG,2 IN 1 D),ORAL
     Route: 048
     Dates: start: 20100501
  2. LEXAPRO (ESCITALOPRAM OXALATE)(ESCITALOPRAM OXALATE) [Concomitant]
  3. PLAVIX [Concomitant]
  4. MIRALAX (MACROGOL)(MACROGOL) [Concomitant]
  5. SOMATULINE DEPOT [Suspect]
     Indication: ACROMEGALY
     Dosage: 60 MG (1 IN 28 D), SUBCUTANEOUS
     Route: 058
     Dates: start: 20100520
  6. RANITIDINE (RANITIDINE)(RANTTIDINE) [Concomitant]
  7. WELCHOL [Concomitant]
  8. TRAZODONE (TRAZODONE)(TRAZODONE) [Concomitant]
  9. MEGESTROL (MEGESTROL) (MEGESTROL) [Concomitant]
  10. ASPIRIN [Concomitant]
  11. BUPROPRION SR (BUPROPRION SR)(SUPROPRION SR) [Concomitant]
  12. TOPAMAX (TOPIRAMATE)(TOPIRAMATE) [Concomitant]
  13. NEXIUM [Concomitant]
  14. LIPITOR [Concomitant]
  15. VITAMIN D (VITAMIN D)(VITAMIN D) [Concomitant]
  16. MULTIVITAMIN(MULTIVITAMIN (NOS) ) (MULTIVITAMIN (NOS)) [Concomitant]
  17. PREMPRO(CONJUGATED ESTROGENS, MEDROXYPROGESTERONE ACETATE)(CONJUGATED [Concomitant]
  18. CALCIUM(CALCIUM)(CALCIUM) [Concomitant]
  19. LISINOPRIL [Concomitant]

REACTIONS (8)
  - BLOOD GLUCOSE INCREASED [None]
  - FALL [None]
  - CONDITION AGGRAVATED [None]
  - CONCUSSION [None]
  - HAEMORRHAGE [None]
  - REGURGITATION [None]
  - VERTIGO [None]
  - ABDOMINAL PAIN UPPER [None]
